FAERS Safety Report 12986516 (Version 1)
Quarter: 2016Q4

REPORT INFORMATION
  Report Type: Spontaneous
  Country: GB (occurrence: GB)
  Receive Date: 20161130
  Receipt Date: 20161130
  Transmission Date: 20170207
  Serious: Yes (Hospitalization)
  Sender: FDA-Public Use
  Company Number: GB-SA-2016SA217897

PATIENT
  Age: 83 Year
  Sex: Female

DRUGS (11)
  1. CLENIL MODULITE [Concomitant]
     Active Substance: BECLOMETHASONE DIPROPIONATE
  2. TICAGRELOR [Concomitant]
     Active Substance: TICAGRELOR
  3. FUROSEMIDE. [Suspect]
     Active Substance: FUROSEMIDE
     Route: 048
  4. IRBESARTAN. [Suspect]
     Active Substance: IRBESARTAN
     Route: 048
  5. FUROSEMIDE. [Suspect]
     Active Substance: FUROSEMIDE
     Route: 048
  6. ADCAL-D3 [Concomitant]
     Active Substance: CALCIUM CARBONATE\CHOLECALCIFEROL
  7. AMIODARONE [Concomitant]
     Active Substance: AMIODARONE
  8. BISOPROLOL [Concomitant]
     Active Substance: BISOPROLOL
  9. ATORVASTATIN [Concomitant]
     Active Substance: ATORVASTATIN
  10. GLICLAZIDE [Concomitant]
     Active Substance: GLICLAZIDE
  11. LETROZOLE. [Concomitant]
     Active Substance: LETROZOLE

REACTIONS (4)
  - Feeling abnormal [Unknown]
  - Dehydration [Unknown]
  - Acute kidney injury [Recovering/Resolving]
  - Unresponsive to stimuli [Unknown]
